FAERS Safety Report 23081098 (Version 5)
Quarter: 2024Q1

REPORT INFORMATION
  Report Type: Spontaneous
  Country: US (occurrence: US)
  Receive Date: 20231018
  Receipt Date: 20240104
  Transmission Date: 20240409
  Serious: No
  Sender: FDA-Public Use
  Company Number: US-PFIZER INC-PV202300139364

PATIENT
  Age: 12 Year
  Sex: Male

DRUGS (1)
  1. GENOTROPIN [Suspect]
     Active Substance: SOMATROPIN
     Indication: Growth hormone deficiency
     Dosage: 2 MG (PER DAY, 3 DAYS PER WEEK)

REACTIONS (7)
  - Drug dose omission by device [Unknown]
  - Off label use [Unknown]
  - Incorrect dose administered [Unknown]
  - Device malfunction [Unknown]
  - Overdose [Unknown]
  - Device information output issue [Unknown]
  - Wrong technique in device usage process [Unknown]
